FAERS Safety Report 6329983-X (Version None)
Quarter: 2009Q3

REPORT INFORMATION
  Report Type: 
  Country: None (occurrence: None)
  Receive Date: 20090825
  Receipt Date: 20090814
  Transmission Date: 20100115
  Serious: Yes (Death, Hospitalization)
  Sender: FDA-Public Use
  Company Number: GXKR2009FR09294

PATIENT
  Age: 62 Year
  Sex: Male

DRUGS (6)
  1. OFLOXACIN            (OFLOXACIN) FILM-COATED TABLET, 200MG [Suspect]
     Indication: URINARY TRACT INFECTION
     Dosage: ORAL
     Route: 048
     Dates: start: 20090221, end: 20090228
  2. SPASFON (PHLOROGLUCINOL, TRIMETHYLPHLOROGLUCINOL) [Concomitant]
  3. KETOPROFEN [Concomitant]
  4. ATARAX /00058403/ (HYDROXYZINE EMBONATE) [Concomitant]
  5. ACETAMINOPHEN [Concomitant]
  6. ESOMEPRAZOLE MAGNESIUM [Concomitant]

REACTIONS (8)
  - BURNS SECOND DEGREE [None]
  - DIALYSIS [None]
  - HYPOTENSION [None]
  - PAIN [None]
  - RENAL IMPAIRMENT [None]
  - RESPIRATORY DISTRESS [None]
  - TENSION [None]
  - TOXIC EPIDERMAL NECROLYSIS [None]
